FAERS Safety Report 20907479 (Version 1)
Quarter: 2022Q2

REPORT INFORMATION
  Report Type: Spontaneous
  Country: US (occurrence: US)
  Receive Date: 20220602
  Receipt Date: 20220602
  Transmission Date: 20220721
  Serious: Yes (Other)
  Sender: FDA-Public Use
  Company Number: US-SA-SAC20220528000011

PATIENT
  Age: 65 Year
  Sex: Male

DRUGS (1)
  1. ZANTAC [Suspect]
     Active Substance: RANITIDINE HYDROCHLORIDE
     Indication: Dyspepsia
     Dosage: UNK, DOSE/UNIT: OTHER; FREQUENCY: OTHER
     Dates: start: 200001, end: 201312

REACTIONS (3)
  - Prostate cancer [Unknown]
  - Breast cancer stage II [Unknown]
  - Gastric cancer [Unknown]

NARRATIVE: CASE EVENT DATE: 20100101
